FAERS Safety Report 5172033-1 (Version None)
Quarter: 2006Q4

REPORT INFORMATION
  Report Type: 
  Country: None (occurrence: None)
  Receive Date: 20061205
  Receipt Date: 20061120
  Transmission Date: 20070319
  Serious: Yes (Other)
  Sender: FDA-Public Use
  Company Number: 232863

PATIENT
  Age: 53 Year
  Sex: Female

DRUGS (5)
  1. AVASTIN [Suspect]
     Indication: COLON CANCER
     Dosage: 5 MG/KG, Q2W, INTRAVENOUS
     Route: 042
     Dates: start: 20051103, end: 20060920
  2. OXALIPLATIN [Suspect]
     Indication: COLON CANCER
     Dosage: 85 MG/M2, Q2W, INTRAVENOUS
     Route: 042
     Dates: start: 20051103, end: 20060412
  3. LEUCOVORIN CALCIUM [Suspect]
     Indication: COLON CANCER
     Dosage: 400 MG/M2, Q2W, INTRAVENOUS
     Route: 042
     Dates: start: 20051103, end: 20060412
  4. FLUOROURACIL [Suspect]
     Indication: COLON CANCER
     Dosage: SEE IMAGE
     Route: 040
     Dates: start: 20051103, end: 20060412
  5. FLUOROURACIL [Suspect]
     Indication: COLON CANCER
     Dosage: SEE IMAGE
     Route: 040
     Dates: start: 20051103, end: 20060412

REACTIONS (8)
  - HEPATIC CIRRHOSIS [None]
  - OVARIAN DISORDER [None]
  - RENAL DISORDER [None]
  - SPLEEN DISORDER [None]
  - SPLENOMEGALY [None]
  - VARICOSE VEIN [None]
  - VASCULAR SHUNT [None]
  - VENOOCCLUSIVE LIVER DISEASE [None]
